FAERS Safety Report 9891477 (Version 2)
Quarter: 2014Q1

REPORT INFORMATION
  Report Type: Spontaneous
  Country: IT (occurrence: None)
  Receive Date: 20140210
  Receipt Date: 20140214
  Transmission Date: 20141002
  Serious: Yes (Other)
  Sender: FDA-Public Use
  Company Number: 2014AP001000

PATIENT
  Age: 49 Year
  Sex: Female

DRUGS (4)
  1. CLARITHROMYCIN [Suspect]
     Indication: UPPER RESPIRATORY TRACT INFECTION
     Dates: start: 20131209, end: 20131209
  2. ISMIGEN [Suspect]
     Indication: UPPER RESPIRATORY TRACT INFECTION
     Dates: start: 20131209, end: 20131209
  3. FLOAMX [Suspect]
     Indication: UPPER RESPIRATORY TRACT INFECTION
     Dates: start: 20131209, end: 20131209
  4. NIMESULIDE (NIMESULIDE) (NIMESULIDE) [Concomitant]

REACTIONS (3)
  - Cardiac arrest [None]
  - Angioedema [None]
  - Urticaria [None]
